FAERS Safety Report 4441097-2 (Version None)
Quarter: 2004Q3

REPORT INFORMATION
  Report Type: 
  Country: None (occurrence: None)
  Receive Date: 20040830
  Receipt Date: 20030813
  Transmission Date: 20050211
  Serious: No
  Sender: FDA-Public Use
  Company Number: 231567

PATIENT
  Age: 71 Year
  Sex: Male
  Weight: 91.6 kg

DRUGS (9)
  1. NOVOLIN 70/30 [Suspect]
     Indication: INSULIN-REQUIRING TYPE II DIABETES MELLITUS
     Dosage: 20 IU, QD,SUBCUTANEOUS
     Route: 058
     Dates: start: 19880101
  2. COREG (CARVEDIOLOL) [Concomitant]
  3. SYNTHROID [Concomitant]
  4. TRICOR (FENOFIBRAE) [Concomitant]
  5. ACETYLSALICYLIC ACID SRT [Concomitant]
  6. FOLIC ACID [Concomitant]
  7. VITAMIN B12 [Concomitant]
  8. CAPTOPRIL [Concomitant]
  9. IRBESARTAN [Concomitant]

REACTIONS (1)
  - HYPOGLYCAEMIA [None]
